FAERS Safety Report 4831180-1 (Version None)
Quarter: 2005Q4

REPORT INFORMATION
  Report Type: 
  Country: None (occurrence: None)
  Receive Date: 20051116
  Receipt Date: 20051116
  Transmission Date: 20060501
  Serious: Yes (Hospitalization)
  Sender: FDA-Public Use
  Company Number: None

PATIENT
  Age: 65 Year
  Sex: Male
  Weight: 104.5 kg

DRUGS (2)
  1. LOTREL [Suspect]
     Indication: DIABETES MELLITUS
     Dosage: 1 CAPSULE  DAILY  PO
     Route: 048
  2. LOTREL [Suspect]
     Indication: HYPERTENSION
     Dosage: 1 CAPSULE  DAILY  PO
     Route: 048

REACTIONS (3)
  - DRUG HYPERSENSITIVITY [None]
  - RASH [None]
  - SWELLING FACE [None]
